FAERS Safety Report 6279909-2 (Version None)
Quarter: 2009Q3

REPORT INFORMATION
  Report Type: 
  Country: None (occurrence: None)
  Receive Date: 20090723
  Receipt Date: 20090515
  Transmission Date: 20100115
  Serious: No
  Sender: FDA-Public Use
  Company Number: US-AMGEN-KDL347378

PATIENT
  Sex: Female

DRUGS (18)
  1. ARANESP [Suspect]
     Indication: RENAL FAILURE CHRONIC
     Dates: start: 20071001
  2. PROCRIT [Suspect]
     Indication: RENAL FAILURE ACUTE
  3. NORVASC [Concomitant]
  4. HYDRALAZINE HYDROCHLORIDE [Concomitant]
  5. SIMVASTATIN [Concomitant]
  6. LABETALOL HCL [Concomitant]
  7. CALCITRIOL [Concomitant]
  8. COZAAR [Concomitant]
  9. FUROSEMIDE [Concomitant]
  10. UNSPECIFIED MEDICATION [Concomitant]
  11. HERBAL SUPPLEMENT [Concomitant]
  12. JANUVIA [Concomitant]
  13. ASPIRIN [Concomitant]
  14. GLIPIZIDE [Concomitant]
  15. IRON [Concomitant]
  16. LISINOPRIL [Concomitant]
  17. MULTI-VITAMINS [Concomitant]
  18. LOVAZA [Concomitant]

REACTIONS (5)
  - BACK PAIN [None]
  - BLOOD CREATININE INCREASED [None]
  - BONE PAIN [None]
  - DRUG HYPERSENSITIVITY [None]
  - HYPERTENSION [None]
